FAERS Safety Report 19559989 (Version 1)
Quarter: 2021Q3

REPORT INFORMATION
  Report Type: Spontaneous
  Country: US (occurrence: US)
  Receive Date: 20210715
  Receipt Date: 20210715
  Transmission Date: 20211014
  Serious: Yes (Other)
  Sender: FDA-Public Use
  Company Number: None

PATIENT
  Age: 66 Year
  Sex: Male
  Weight: 83.25 kg

DRUGS (2)
  1. NEUTROGENA BEACH DEFENSE WATER PLUS SUN PROTECTION SUNSCREEN BROAD SPECTRUM SPF 60 PLUS [Suspect]
     Active Substance: AVOBENZONE\HOMOSALATE\OCTISALATE\OCTOCRYLENE
     Indication: PROPHYLAXIS
     Dosage: ?          OTHER STRENGTH:SPF 60;QUANTITY:8.5 OUNCE(S);?
     Route: 061
  2. NEUTROGENA BEACH DEFENSE WATER PLUS SUN PROTECTION SUNSCREEN BROAD SPECTRUM SPF 60 PLUS [Suspect]
     Active Substance: AVOBENZONE\HOMOSALATE\OCTISALATE\OCTOCRYLENE
     Indication: SKIN CANCER
     Dosage: ?          OTHER STRENGTH:SPF 60;QUANTITY:8.5 OUNCE(S);?
     Route: 061

REACTIONS (1)
  - Skin cancer [None]

NARRATIVE: CASE EVENT DATE: 20210712
